FAERS Safety Report 10085604 (Version 7)
Quarter: 2015Q1

REPORT INFORMATION
  Report Type: Spontaneous
  Country: ES (occurrence: ES)
  Receive Date: 20140418
  Receipt Date: 20150325
  Transmission Date: 20150720
  Serious: Yes (Other)
  Sender: FDA-Public Use
  Company Number: ES-AMGEN INC.-ESPSP2014014068

PATIENT
  Age: 68 Year
  Sex: Female

DRUGS (8)
  1. ENBREL [Suspect]
     Active Substance: ETANERCEPT
     Indication: PSORIASIS
     Dosage: 50 MG, TWICE WEEKLY (ON TUESDAY AND FRIDAY)
     Route: 065
     Dates: end: 201404
  2. ENBREL [Suspect]
     Active Substance: ETANERCEPT
     Dosage: 50 MG, WEEKLY (ON MONDAY)
     Route: 058
     Dates: start: 201407
  3. ENBREL [Suspect]
     Active Substance: ETANERCEPT
     Dosage: 50 MG, TWICE WEEKLY (ON TUESDAY AND FRIDAY)
     Route: 065
     Dates: start: 20140515, end: 2014
  4. ENBREL [Suspect]
     Active Substance: ETANERCEPT
     Dosage: 50 MG, 2X/WEEK
     Route: 058
  5. TRADJENTA [Concomitant]
     Active Substance: LINAGLIPTIN
     Indication: DIABETES MELLITUS
     Dosage: 1 DF, 1X/DAY
  6. PRAVAFENIX [Concomitant]
     Indication: HYPERCHOLESTEROLAEMIA
     Dosage: 1 DF, 1X/DAY
  7. INSULIN [Concomitant]
     Active Substance: INSULIN NOS
     Indication: DIABETES MELLITUS
     Dosage: 10 IU, 1X/DAY
  8. NOVONORM [Concomitant]
     Active Substance: REPAGLINIDE
     Indication: DIABETES MELLITUS
     Dosage: 1 MG, 2X/DAY

REACTIONS (10)
  - Dry skin [Not Recovered/Not Resolved]
  - Inflammation [Unknown]
  - Ear pain [Unknown]
  - Injection site mass [Recovered/Resolved]
  - Aphonia [Recovered/Resolved]
  - Viral infection [Unknown]
  - Ear discomfort [Unknown]
  - Pruritus [Not Recovered/Not Resolved]
  - Deafness [Recovered/Resolved]
  - Psoriasis [Not Recovered/Not Resolved]

NARRATIVE: CASE EVENT DATE: 2014
